FAERS Safety Report 12071726 (Version 2)
Quarter: 2016Q1

REPORT INFORMATION
  Report Type: Report from Study
  Country: BR (occurrence: BR)
  Receive Date: 20160212
  Receipt Date: 20160224
  Transmission Date: 20160526
  Serious: Yes (Hospitalization, Other)
  Sender: FDA-Public Use
  Company Number: BR-UCBSA-2015029082

PATIENT
  Age: 44 Year
  Sex: Female

DRUGS (4)
  1. AMOXYCILLIN [Concomitant]
     Active Substance: AMOXICILLIN
     Indication: URINARY TRACT INFECTION
     Dosage: 750 MG, 3X/DAY (TID)
     Route: 048
     Dates: start: 20160202
  2. DIPIRONE [Concomitant]
     Active Substance: METAMIZOLE SODIUM
     Indication: PYREXIA
     Dosage: 500 MG, UNK
     Route: 048
     Dates: start: 20151220
  3. CLAVULANATE POTASSIUM [Concomitant]
     Active Substance: CLAVULANATE POTASSIUM
     Indication: URINARY TRACT INFECTION
     Dosage: 750 MG, 3X/DAY (TID)
     Route: 048
     Dates: start: 20160202
  4. CERTOLIZUMAB PEGOL [Suspect]
     Active Substance: CERTOLIZUMAB PEGOL
     Indication: RHEUMATOID ARTHRITIS
     Dosage: 200 MG, UNK
     Dates: start: 20150710, end: 201512

REACTIONS (8)
  - Dizziness [Unknown]
  - Pyrexia [Not Recovered/Not Resolved]
  - Blood pressure decreased [Recovered/Resolved]
  - Urinary tract infection [Not Recovered/Not Resolved]
  - Jaundice [Recovered/Resolved]
  - Pleural effusion [Recovering/Resolving]
  - Hyperhidrosis [Unknown]
  - Coma [Unknown]

NARRATIVE: CASE EVENT DATE: 201507
